FAERS Safety Report 12905057 (Version 2)
Quarter: 2016Q4

REPORT INFORMATION
  Report Type: Spontaneous
  Country: US (occurrence: US)
  Receive Date: 20161102
  Receipt Date: 20161201
  Transmission Date: 20170207
  Serious: Yes (Hospitalization, Other)
  Sender: FDA-Public Use
  Company Number: US-SAOL THERAPEUTICS-2016SAO00743

PATIENT
  Age: 78 Year
  Sex: Female
  Weight: 68.27 kg

DRUGS (14)
  1. KEPPRA [Concomitant]
     Active Substance: LEVETIRACETAM
     Dosage: 250 MG, 2X/DAY
     Route: 048
  2. OXYBUTYNIN CHLORIDE ER [Concomitant]
     Active Substance: OXYBUTYNIN CHLORIDE
     Dosage: 15 MG, 1X/DAY
  3. LIORESAL [Suspect]
     Active Substance: BACLOFEN
     Indication: MULTIPLE SCLEROSIS
     Dosage: 1300 ?G, \DAY
     Route: 037
     Dates: start: 20160830
  4. PRAVASTATIN SODIUM. [Concomitant]
     Active Substance: PRAVASTATIN SODIUM
     Dosage: 40 MG, 1X/DAY
     Route: 048
  5. METFORMIN HCL [Concomitant]
     Active Substance: METFORMIN HYDROCHLORIDE
     Dosage: 500 MG, 2X/DAY
     Route: 048
  6. LIORESAL [Suspect]
     Active Substance: BACLOFEN
     Dosage: 1200 ?G, \DAY
  7. VENLAFAXINE HCL [Concomitant]
     Active Substance: VENLAFAXINE HYDROCHLORIDE
     Dosage: 75 MG, 1X/DAY
     Route: 048
  8. VITAMIN D [Concomitant]
     Active Substance: CHOLECALCIFEROL
     Dosage: 1000 IU, 1X/DAY
     Route: 048
  9. DOCUSATE SODIUM. [Concomitant]
     Active Substance: DOCUSATE SODIUM
  10. CARVEDILOL. [Concomitant]
     Active Substance: CARVEDILOL
     Dosage: 12.5 MG, 2X/DAY
     Route: 048
  11. SEROQUEL [Concomitant]
     Active Substance: QUETIAPINE FUMARATE
     Dosage: 12.5 MG, \DAY
     Route: 048
  12. LIORESAL [Suspect]
     Active Substance: BACLOFEN
     Indication: MUSCLE SPASTICITY
     Dosage: 1273.1 ?G \DAY
     Dates: start: 20160804, end: 20160830
  13. KEPPRA [Concomitant]
     Active Substance: LEVETIRACETAM
     Dosage: 500 MG, 1X/DAY
     Route: 048
  14. MULTIPLE VITAMINS-MINERALS [Concomitant]

REACTIONS (21)
  - Hyperhidrosis [Recovered/Resolved]
  - Feeding disorder [Recovered/Resolved]
  - Malaise [Unknown]
  - Fatigue [Unknown]
  - Drug withdrawal syndrome [Recovered/Resolved]
  - Tremor [Recovered/Resolved]
  - Dysphagia [Recovered/Resolved]
  - Speech disorder [Unknown]
  - Dysuria [Unknown]
  - Urinary incontinence [Unknown]
  - Muscular weakness [Unknown]
  - Device battery issue [Recovered/Resolved]
  - Dystonia [Unknown]
  - Myoclonus [Unknown]
  - Device failure [Recovered/Resolved]
  - Dyskinesia [Recovered/Resolved]
  - Discomfort [Recovered/Resolved]
  - Atrophy [Unknown]
  - Hyperlipidaemia [Unknown]
  - Hypertonia [Recovered/Resolved]
  - Hyporeflexia [Unknown]

NARRATIVE: CASE EVENT DATE: 201609
